FAERS Safety Report 8369327-5 (Version None)
Quarter: 2012Q2

REPORT INFORMATION
  Report Type: 
  Country: None (occurrence: None)
  Receive Date: 20120518
  Receipt Date: 20120514
  Transmission Date: 20120825
  Serious: Yes (Death, Other)
  Sender: FDA-Public Use
  Company Number: PHHY2012DE036510

PATIENT
  Sex: Male
  Weight: 90 kg

DRUGS (9)
  1. INSUMAN RAPID [Concomitant]
     Indication: DIABETES MELLITUS
     Dosage: 15-18 IU/DAY
     Route: 058
     Dates: start: 20110325
  2. BENAZEPRIL HYDROCHLORIDE [Concomitant]
     Indication: HYPERTENSION
     Dosage: 1 DF, QD
     Route: 048
     Dates: start: 20010323
  3. TRAMADOL HYDROCHLORIDE [Concomitant]
     Indication: PAIN
     Dosage: 60 DRP
     Route: 048
     Dates: start: 20110515
  4. SPIRIVA [Concomitant]
     Indication: CHRONIC OBSTRUCTIVE PULMONARY DISEASE
     Dosage: UNK
     Dates: start: 20110411
  5. CALCIUM CHANNEL BLOCKERS [Concomitant]
  6. ASPIRIN [Concomitant]
     Indication: CARDIOVASCULAR DISORDER
     Dosage: 1 DF, QD
     Route: 048
     Dates: start: 20010616
  7. RASILEZ [Suspect]
     Indication: HYPERTENSION
     Dosage: 150 MG/DAY
     Route: 048
     Dates: start: 20081124
  8. DIURETICS [Concomitant]
  9. TORSEMIDE [Concomitant]
     Indication: HYPERTENSION
     Dosage: 1 DF, QD
     Route: 048
     Dates: start: 20110509

REACTIONS (6)
  - INSOMNIA [None]
  - BLOOD PRESSURE DIASTOLIC DECREASED [None]
  - PAIN [None]
  - EPILEPSY [None]
  - CYSTITIS [None]
  - CARDIAC FAILURE [None]
